FAERS Safety Report 17169127 (Version 1)
Quarter: 2019Q4

REPORT INFORMATION
  Report Type: Spontaneous
  Country: US (occurrence: US)
  Receive Date: 20191218
  Receipt Date: 20191218
  Transmission Date: 20200122
  Serious: No
  Sender: FDA-Public Use
  Company Number: US-TAKEDA-2019TUS070785

PATIENT
  Sex: Male

DRUGS (2)
  1. NINLARO [Suspect]
     Active Substance: IXAZOMIB CITRATE
     Indication: PLASMA CELL MYELOMA
     Dosage: 4 MILLIGRAM
     Route: 048
     Dates: start: 20191004
  2. REVLIMID [Concomitant]
     Active Substance: LENALIDOMIDE
     Dosage: UNK

REACTIONS (3)
  - Hypoaesthesia [Unknown]
  - Pain [Unknown]
  - Musculoskeletal stiffness [Unknown]
